FAERS Safety Report 19642029 (Version 2)
Quarter: 2022Q1

REPORT INFORMATION
  Report Type: Spontaneous
  Country: US (occurrence: None)
  Receive Date: 20210730
  Receipt Date: 20220128
  Transmission Date: 20220423
  Serious: Yes (Other)
  Sender: FDA-Public Use
  Company Number: 2021A645921

PATIENT
  Age: 55 Year
  Sex: Male
  Weight: 117.9 kg

DRUGS (40)
  1. PRILOSEC [Suspect]
     Active Substance: OMEPRAZOLE MAGNESIUM
     Indication: Gastrooesophageal reflux disease
     Dosage: FOR VARIOUS DATES AND YEARS
     Route: 048
  2. PRILOSEC [Suspect]
     Active Substance: OMEPRAZOLE MAGNESIUM
     Indication: Gastrooesophageal reflux disease
     Route: 048
     Dates: start: 2014, end: 2016
  3. PRILOSEC [Suspect]
     Active Substance: OMEPRAZOLE MAGNESIUM
     Indication: Gastrooesophageal reflux disease
     Dosage: GENERIC
     Route: 065
     Dates: start: 2014, end: 2016
  4. PRILOSEC OTC [Suspect]
     Active Substance: OMEPRAZOLE MAGNESIUM
     Indication: Gastrooesophageal reflux disease
     Dosage: FOR VARIOUS DATES AND YEARS
     Route: 048
  5. PRILOSEC OTC [Suspect]
     Active Substance: OMEPRAZOLE MAGNESIUM
     Indication: Gastrooesophageal reflux disease
     Route: 048
     Dates: start: 2014, end: 2016
  6. RAMIPRIL [Concomitant]
     Active Substance: RAMIPRIL
     Indication: Hypertension
     Dates: start: 201401, end: 201606
  7. SIMVASTATIN [Concomitant]
     Active Substance: SIMVASTATIN
     Indication: Blood cholesterol increased
     Dates: start: 201412, end: 201606
  8. NAPROXEN [Concomitant]
     Active Substance: NAPROXEN
     Indication: Pain
     Dates: start: 201403
  9. AMITRIPTYLINE [Concomitant]
     Active Substance: AMITRIPTYLINE
     Indication: Depression
     Dates: start: 201604, end: 201605
  10. AMITRIPTYLINE [Concomitant]
     Active Substance: AMITRIPTYLINE
     Indication: Neuralgia
     Dates: start: 201604, end: 201605
  11. CARBAMAZEPINE [Concomitant]
     Active Substance: CARBAMAZEPINE
     Indication: Seizure
     Dates: start: 201602, end: 201603
  12. CARBAMAZEPINE [Concomitant]
     Active Substance: CARBAMAZEPINE
     Indication: Neuralgia
     Dates: start: 201602, end: 201603
  13. CARBAMAZEPINE [Concomitant]
     Active Substance: CARBAMAZEPINE
     Indication: Bipolar disorder
     Dates: start: 201602, end: 201603
  14. VITAMIN C [Concomitant]
     Active Substance: ASCORBIC ACID
     Indication: Immune system disorder
     Dates: start: 2018
  15. MULTI-VITAMIN [Concomitant]
     Active Substance: .ALPHA.-TOCOPHEROL ACETATE, DL-\ASCORBIC ACID\CYANOCOBALAMIN\FLUORIDE ION\FOLIC ACID\NIACIN\PYRIDOXI
     Indication: Immune system disorder
     Dates: start: 2018
  16. PEPCID AC [Concomitant]
     Active Substance: FAMOTIDINE
     Dates: start: 2018
  17. TUMS [Concomitant]
     Active Substance: CALCIUM CARBONATE
     Dosage: AS NEEDED
     Dates: start: 2016
  18. ALKA-SELTZER [Concomitant]
     Active Substance: ANHYDROUS CITRIC ACID\ASPIRIN\SODIUM BICARBONATE
     Dosage: AS NEEDED
     Dates: start: 2016
  19. MILK OF MAGNESIA [Concomitant]
     Active Substance: MAGNESIUM HYDROXIDE
     Dosage: AS NEEDED
     Dates: start: 2016
  20. PEPTO-BISMOL [Concomitant]
     Active Substance: BISMUTH SUBSALICYLATE
     Dosage: AS NEEDED
     Dates: start: 2016
  21. ROLAIDS [Concomitant]
     Active Substance: CALCIUM CARBONATE\MAGNESIUM HYDROXIDE
     Dosage: AS NEEDED
     Dates: start: 2016
  22. MAALOX ANTACID [Concomitant]
     Active Substance: ALUMINUM HYDROXIDE\DIMETHICONE\MAGNESIUM HYDROXIDE
     Dosage: AS NEEDED
     Dates: start: 2016
  23. TIZANIDINE [Concomitant]
     Active Substance: TIZANIDINE
     Dosage: AS NEEDED
     Dates: start: 2016
  24. METFORMIN [Concomitant]
     Active Substance: METFORMIN HYDROCHLORIDE
     Dosage: AS NEEDED
     Dates: start: 2016
  25. TRADJENTA [Concomitant]
     Active Substance: LINAGLIPTIN
     Dosage: AS NEEDED
     Dates: start: 2016
  26. ALPRAZOLAM [Concomitant]
     Active Substance: ALPRAZOLAM
     Dosage: AS NEEDED
     Dates: start: 2016
  27. GLIMEPIRIDE [Concomitant]
     Active Substance: GLIMEPIRIDE
     Dosage: AS NEEDED
     Dates: start: 2016
  28. AMLODIPINE [Concomitant]
     Active Substance: AMLODIPINE BESYLATE
     Dosage: AS NEEDED
     Dates: start: 2016
  29. TRIAMCINOLONE [Concomitant]
     Active Substance: TRIAMCINOLONE
     Dosage: AS NEEDED
     Dates: start: 2016
  30. WARFARIN [Concomitant]
     Active Substance: WARFARIN
     Dosage: AS NEEDED
     Dates: start: 2016
  31. DIPHENHYDRAMINE [Concomitant]
     Active Substance: DIPHENHYDRAMINE
     Dosage: AS NEEDED
     Dates: start: 2016
  32. OXYCODONE [Concomitant]
     Active Substance: OXYCODONE
     Dosage: AS NEEDED
     Dates: start: 2016
  33. SERTRALINE [Concomitant]
     Active Substance: SERTRALINE HYDROCHLORIDE
     Dosage: AS NEEDED
     Dates: start: 2016
  34. QUETIAPINE [Concomitant]
     Active Substance: QUETIAPINE
     Dosage: AS NEEDED
     Dates: start: 2016
  35. DONEPEZIL [Concomitant]
     Active Substance: DONEPEZIL
     Dosage: AS NEEDED
     Dates: start: 2016
  36. BUSPIRONE [Concomitant]
     Active Substance: BUSPIRONE HYDROCHLORIDE
     Dosage: AS NEEDED
     Dates: start: 2016
  37. LANTUS [Concomitant]
     Active Substance: INSULIN GLARGINE
     Dosage: AS NEEDED
     Dates: start: 2016
  38. BUTALBITAL [Concomitant]
     Active Substance: BUTALBITAL
     Dosage: AS NEEDED
     Dates: start: 2016
  39. ONDANSETRON [Concomitant]
     Active Substance: ONDANSETRON
     Dosage: AS NEEDED
     Dates: start: 2016
  40. FLUTICASONE [Concomitant]
     Active Substance: FLUTICASONE
     Dosage: AS NEEDED
     Dates: start: 2016

REACTIONS (4)
  - Acute kidney injury [Not Recovered/Not Resolved]
  - Chronic kidney disease [Not Recovered/Not Resolved]
  - Renal failure [Unknown]
  - Rebound acid hypersecretion [Unknown]

NARRATIVE: CASE EVENT DATE: 20150101
